FAERS Safety Report 14133235 (Version 1)
Quarter: 2017Q4

REPORT INFORMATION
  Report Type: Spontaneous
  Country: US (occurrence: US)
  Receive Date: 20171027
  Receipt Date: 20171027
  Transmission Date: 20180321
  Serious: No
  Sender: FDA-Public Use
  Company Number: US-AMGEN-USASP2017160355

PATIENT
  Age: 47 Year
  Sex: Female

DRUGS (4)
  1. CAPSAICIN. [Suspect]
     Active Substance: CAPSAICIN
     Indication: HERPES ZOSTER
     Dosage: UNK
     Route: 065
  2. CAPSAICIN. [Suspect]
     Active Substance: CAPSAICIN
     Indication: SKIN BURNING SENSATION
  3. CAPSAICIN. [Suspect]
     Active Substance: CAPSAICIN
     Indication: MYALGIA
  4. ENBREL [Suspect]
     Active Substance: ETANERCEPT
     Indication: PRODUCT USED FOR UNKNOWN INDICATION
     Dosage: UNK
     Route: 065
     Dates: start: 201606

REACTIONS (5)
  - Gastrointestinal disorder [Unknown]
  - Injection site pain [Unknown]
  - Myalgia [Unknown]
  - Skin burning sensation [Unknown]
  - Herpes zoster [Unknown]

NARRATIVE: CASE EVENT DATE: 20171015
